FAERS Safety Report 5822303-6 (Version None)
Quarter: 2008Q3

REPORT INFORMATION
  Report Type: 
  Country: None (occurrence: None)
  Receive Date: 20080725
  Receipt Date: 20080328
  Transmission Date: 20090109
  Serious: No
  Sender: FDA-Public Use
  Company Number: US-AMGEN-KDL272315

PATIENT
  Sex: Male
  Weight: 60.8 kg

DRUGS (13)
  1. PROCRIT [Suspect]
     Indication: ANAEMIA OF MALIGNANT DISEASE
     Dates: start: 20080304, end: 20080325
  2. GEMZAR [Concomitant]
     Dates: end: 20080304
  3. ENALAPRIL MALEATE [Concomitant]
  4. AMARYL [Concomitant]
  5. SIMVASTATIN [Concomitant]
  6. ALLOPURINOL [Concomitant]
  7. METOPROLOL TARTRATE [Concomitant]
  8. METFORMIN HCL [Concomitant]
  9. MULTI-VITAMINS [Concomitant]
  10. TYLENOL [Concomitant]
  11. CARBOPLATIN [Concomitant]
     Dates: end: 20080226
  12. TAXOL [Concomitant]
  13. GEMZAR [Concomitant]
     Dates: end: 20080304

REACTIONS (4)
  - ASTHENIA [None]
  - HEADACHE [None]
  - INFLUENZA LIKE ILLNESS [None]
  - PYREXIA [None]
